FAERS Safety Report 10387960 (Version 1)
Quarter: 2014Q3

REPORT INFORMATION
  Report Type: Spontaneous
  Country: BR (occurrence: BR)
  Receive Date: 20140815
  Receipt Date: 20140815
  Transmission Date: 20150326
  Serious: Yes (Life-Threatening, Hospitalization, Other)
  Sender: FDA-Public Use
  Company Number: BR-AMGEN-BRASP2014061845

PATIENT
  Sex: Female

DRUGS (1)
  1. ENBREL [Suspect]
     Active Substance: ETANERCEPT
     Indication: PSORIATIC ARTHROPATHY
     Dosage: 50 MG, ONCE WEEKLY
     Route: 065

REACTIONS (17)
  - Lower limb fracture [Unknown]
  - Crying [Unknown]
  - Psoriasis [Unknown]
  - Lung neoplasm malignant [Unknown]
  - Back pain [Recovering/Resolving]
  - Nervousness [Unknown]
  - Dyspnoea [Recovering/Resolving]
  - Device breakage [Unknown]
  - Lung disorder [Unknown]
  - Wound [Unknown]
  - Dysentery [Unknown]
  - Abasia [Unknown]
  - Pulmonary pain [Unknown]
  - Dehydration [Unknown]
  - Arthralgia [Unknown]
  - Fall [Unknown]
  - Aphasia [Unknown]

NARRATIVE: CASE EVENT DATE: 2014
